FAERS Safety Report 4704453-0 (Version None)
Quarter: 2005Q2

REPORT INFORMATION
  Report Type: 
  Country: None (occurrence: None)
  Receive Date: 20050628
  Receipt Date: 20050609
  Transmission Date: 20051028
  Serious: Yes (Death, Hospitalization)
  Sender: FDA-Public Use
  Company Number: GBS050617620

PATIENT
  Age: 44 Year
  Sex: Male
  Weight: 55 kg

DRUGS (18)
  1. XIGRIS [Suspect]
     Indication: SEPSIS
     Dosage: 1.4 MG/HR
     Dates: start: 20050517, end: 20050521
  2. PROPOFOL [Concomitant]
  3. ALFENTANIL [Concomitant]
  4. NORADRENALINE [Concomitant]
  5. ADRENALINE [Concomitant]
  6. PANTOPRAZOLE [Concomitant]
  7. METRONIDAZOLE [Concomitant]
  8. RIFAMPICIN [Concomitant]
  9. ISONIAZID [Concomitant]
  10. CIPROFLOXACIN [Concomitant]
  11. AMIKACIN [Concomitant]
  12. CEFUROXIME [Concomitant]
  13. HYDROCORTISONE(HYDROCORTISONE   /00028601) [Concomitant]
  14. PYRAZINAMIDE [Concomitant]
  15. PABRINEX [Concomitant]
  16. SALBUTAMOL [Concomitant]
  17. ATROVENT [Concomitant]
  18. METOCLOPRAMIDE [Concomitant]

REACTIONS (2)
  - MULTI-ORGAN FAILURE [None]
  - PULMONARY TUBERCULOSIS [None]
